FAERS Safety Report 21985300 (Version 1)
Quarter: 2023Q1

REPORT INFORMATION
  Report Type: Spontaneous
  Country: US (occurrence: US)
  Receive Date: 20230213
  Receipt Date: 20230213
  Transmission Date: 20230417
  Serious: Yes (Other)
  Sender: FDA-Public Use
  Company Number: US-002147023-NVSC2023US028006

PATIENT
  Age: 81 Year
  Sex: Female

DRUGS (1)
  1. RECLAST [Suspect]
     Active Substance: ZOLEDRONIC ACID
     Indication: Product used for unknown indication
     Dosage: 5 MG, Q12MO
     Route: 042
     Dates: start: 20230117, end: 20230117

REACTIONS (8)
  - Embolism [Unknown]
  - Dysstasia [Unknown]
  - Muscular weakness [Unknown]
  - Abdominal pain [Unknown]
  - Back pain [Unknown]
  - Pain [Unknown]
  - Body temperature increased [Unknown]
  - Asthenia [Unknown]

NARRATIVE: CASE EVENT DATE: 20230118
